FAERS Safety Report 4273677-1 (Version None)
Quarter: 2004Q1

REPORT INFORMATION
  Report Type: 
  Country: None (occurrence: None)
  Receive Date: 20040116
  Receipt Date: 20040116
  Transmission Date: 20041129
  Serious: Yes (Hospitalization)
  Sender: FDA-Public Use
  Company Number: None

PATIENT
  Age: 75 Year
  Sex: Male

DRUGS (2)
  1. CITALOPRAM [Suspect]
     Dosage: 5 MG Q AM
     Dates: start: 20031229, end: 20031230
  2. ZOLPIDEM TARTRATE [Suspect]
     Dosage: 10 MG QHS X 10D
     Dates: start: 20031208, end: 20031218

REACTIONS (4)
  - AGGRESSION [None]
  - CONFUSIONAL STATE [None]
  - HALLUCINATION, AUDITORY [None]
  - INSOMNIA [None]
